FAERS Safety Report 10414838 (Version 1)
Quarter: 2014Q3

REPORT INFORMATION
  Report Type: Spontaneous
  Country: US (occurrence: None)
  Receive Date: 20140827
  Receipt Date: 20140827
  Transmission Date: 20150326
  Serious: Yes (Other)
  Sender: FDA-Public Use
  Company Number: None

PATIENT
  Age: 35 Year
  Sex: Female
  Weight: 83.01 kg

DRUGS (1)
  1. LAMOTRIGINE. [Suspect]
     Active Substance: LAMOTRIGINE
     Indication: BIPOLAR DISORDER
     Dosage: 2 TABLETS, BID, ORAL
     Route: 048
     Dates: start: 20140805, end: 20140826

REACTIONS (3)
  - Product substitution issue [None]
  - Disease recurrence [None]
  - Therapeutic response changed [None]

NARRATIVE: CASE EVENT DATE: 20140805
